FAERS Safety Report 9532252 (Version 1)
Quarter: 2013Q3

REPORT INFORMATION
  Report Type: Spontaneous
  Country: US (occurrence: None)
  Receive Date: 20130916
  Receipt Date: 20130916
  Transmission Date: 20140515
  Serious: Yes (Hospitalization)
  Sender: FDA-Public Use
  Company Number: 2013AP008032

PATIENT
  Age: 50 Year
  Sex: Female

DRUGS (2)
  1. LAMOTRIGINE [Suspect]
  2. CYCLOBENZAPRINE [Suspect]
     Indication: VIRAL INFECTION

REACTIONS (4)
  - Drug reaction with eosinophilia and systemic symptoms [None]
  - Drug interaction [None]
  - Viral infection [None]
  - Drug hypersensitivity [None]
